FAERS Safety Report 19676456 (Version 1)
Quarter: 2021Q3

REPORT INFORMATION
  Report Type: Spontaneous
  Country: US (occurrence: US)
  Receive Date: 20210809
  Receipt Date: 20210809
  Transmission Date: 20211014
  Serious: No
  Sender: FDA-Public Use
  Company Number: US-SA-2021SA262243

PATIENT
  Age: 28 Year
  Sex: Female

DRUGS (1)
  1. DUPIXENT [Suspect]
     Active Substance: DUPILUMAB
     Indication: ASPIRIN-EXACERBATED RESPIRATORY DISEASE
     Dosage: UNK

REACTIONS (2)
  - Maternal exposure during pregnancy [Unknown]
  - Product use in unapproved indication [Unknown]
